FAERS Safety Report 16724410 (Version 1)
Quarter: 2019Q3

REPORT INFORMATION
  Report Type: Spontaneous
  Country: JP (occurrence: JP)
  Receive Date: 20190821
  Receipt Date: 20190821
  Transmission Date: 20191005
  Serious: Yes (Hospitalization)
  Sender: FDA-Public Use
  Company Number: JP-JNJFOC-20190814238

PATIENT
  Age: 74 Year
  Sex: Male

DRUGS (17)
  1. SEIBULE [Concomitant]
     Active Substance: MIGLITOL
     Indication: TYPE 2 DIABETES MELLITUS
     Dosage: 50 MILLIGRAM, TID
     Route: 048
     Dates: end: 20181225
  2. TRESIBA [Concomitant]
     Active Substance: INSULIN DEGLUDEC
     Dosage: 46 INTERNATIONAL UNIT, QD
     Route: 051
     Dates: start: 20160324, end: 20170611
  3. ZYLORIC [Concomitant]
     Active Substance: ALLOPURINOL
     Dosage: 100 MILLIGRAM, QD
     Route: 048
     Dates: end: 20171225
  4. TRESIBA [Concomitant]
     Active Substance: INSULIN DEGLUDEC
     Indication: TYPE 2 DIABETES MELLITUS
     Dosage: 38 INTERNATIONAL UNIT, QD
     Route: 051
     Dates: start: 20151005, end: 20160323
  5. TRAZENTA [Concomitant]
     Active Substance: LINAGLIPTIN
     Indication: TYPE 2 DIABETES MELLITUS
     Dosage: 5 MILLIGRAM, QD
     Route: 048
     Dates: start: 20180425, end: 20180704
  6. GLUBES [Concomitant]
     Active Substance: MITIGLINIDE CALCIUM HYDRATE\VOGLIBOSE
     Indication: TYPE 2 DIABETES MELLITUS
     Dosage: 1 DOSAGE FORM, TID
     Route: 048
     Dates: start: 20180425, end: 20180704
  7. APIDRA [Concomitant]
     Active Substance: INSULIN GLULISINE
     Indication: TYPE 2 DIABETES MELLITUS
     Dosage: UNK, TID
     Route: 051
     Dates: start: 20140214, end: 20161121
  8. VICTOZA [Concomitant]
     Active Substance: LIRAGLUTIDE
     Indication: TYPE 2 DIABETES MELLITUS
     Dosage: 0.9 MILLIGRAM, QD
     Route: 051
     Dates: start: 20150601, end: 20181225
  9. ACTOS [Concomitant]
     Active Substance: PIOGLITAZONE HYDROCHLORIDE
     Dosage: 30 MILLIGRAM, QD
     Route: 048
     Dates: start: 20180425, end: 20180704
  10. EPADEL-S [Concomitant]
     Active Substance: ICOSAPENT ETHYL
     Dosage: 0.9 GRAM, BID
     Route: 048
     Dates: start: 20171225, end: 20181225
  11. CANAGLIFLOZIN [Suspect]
     Active Substance: CANAGLIFLOZIN
     Dosage: 100 MILLIGRAM, QD
     Route: 048
     Dates: start: 20180425, end: 20180704
  12. CANAGLIFLOZIN [Suspect]
     Active Substance: CANAGLIFLOZIN
     Indication: TYPE 2 DIABETES MELLITUS
     Dosage: 100 MILLIGRAM, QD
     Route: 048
     Dates: start: 20151204, end: 20171225
  13. METGLUCO [Concomitant]
     Active Substance: METFORMIN HYDROCHLORIDE
     Dosage: 250 MILLIGRAM, TID
     Route: 048
     Dates: start: 20180425, end: 20180704
  14. TRESIBA [Concomitant]
     Active Substance: INSULIN DEGLUDEC
     Dosage: 42 INTERNATIONAL UNIT, QD
     Route: 051
     Dates: start: 20170612, end: 20171225
  15. METGLUCO [Concomitant]
     Active Substance: METFORMIN HYDROCHLORIDE
     Indication: TYPE 2 DIABETES MELLITUS
     Dosage: 250 MILLIGRAM, TID
     Route: 048
     Dates: end: 20181225
  16. ACTOS [Concomitant]
     Active Substance: PIOGLITAZONE HYDROCHLORIDE
     Indication: TYPE 2 DIABETES MELLITUS
     Dosage: 15 MILLIGRAM, QD
     Route: 048
     Dates: start: 20161219, end: 20181225
  17. EPADEL-S [Concomitant]
     Active Substance: ICOSAPENT ETHYL
     Dosage: 900 MILLIGRAM, BID
     Route: 048
     Dates: start: 20180425, end: 20180704

REACTIONS (1)
  - Cerebral infarction [Recovered/Resolved with Sequelae]

NARRATIVE: CASE EVENT DATE: 20171230
